FAERS Safety Report 14798747 (Version 1)
Quarter: 2018Q2

REPORT INFORMATION
  Report Type: Spontaneous
  Country: DE (occurrence: DE)
  Receive Date: 20180424
  Receipt Date: 20180424
  Transmission Date: 20180711
  Serious: Yes (Hospitalization)
  Sender: FDA-Public Use
  Company Number: DE-BAYER-2018-072281

PATIENT
  Age: 74 Year
  Sex: Male

DRUGS (4)
  1. METOCLOPRAMIDE. [Concomitant]
     Active Substance: METOCLOPRAMIDE
     Dosage: 10 MG, QD
  2. TORASEMID [Concomitant]
     Active Substance: TORSEMIDE
     Dosage: 100 MG, OM
  3. ACETYLSALICYLIC ACID({=100 MG) [Suspect]
     Active Substance: ASPIRIN
     Dosage: 0.5 DF, OM
  4. METOPROLOL. [Concomitant]
     Active Substance: METOPROLOL
     Dosage: 47.5 MG, 1.5-0-1-0,  BID

REACTIONS (5)
  - Haematochezia [Unknown]
  - Pallor [Unknown]
  - Asthenia [Unknown]
  - General physical health deterioration [Unknown]
  - Fatigue [Unknown]
